FAERS Safety Report 15839627 (Version 2)
Quarter: 2019Q1

REPORT INFORMATION
  Report Type: Spontaneous
  Country: DE (occurrence: DE)
  Receive Date: 20190117
  Receipt Date: 20190212
  Transmission Date: 20190417
  Serious: Yes (Other)
  Sender: FDA-Public Use
  Company Number: PHHY2019DE005295

PATIENT
  Age: 46 Year
  Sex: Male
  Weight: 82 kg

DRUGS (1)
  1. ADALIMUMAB [Suspect]
     Active Substance: ADALIMUMAB
     Indication: PSORIASIS
     Dosage: UNK
     Route: 058
     Dates: start: 20161010, end: 20170608

REACTIONS (10)
  - Rhabdomyosarcoma [Not Recovered/Not Resolved]
  - Haematoma [Unknown]
  - Testicular mass [Unknown]
  - Nail disorder [Recovering/Resolving]
  - Metastases to lymph nodes [Unknown]
  - Testis cancer [Unknown]
  - Testicular germ cell tumour [Not Recovered/Not Resolved]
  - Metastases to soft tissue [Unknown]
  - Scrotal mass [Unknown]
  - Psoriasis [Recovering/Resolving]

NARRATIVE: CASE EVENT DATE: 201612
